FAERS Safety Report 7881030-4 (Version None)
Quarter: 2011Q4

REPORT INFORMATION
  Report Type: 
  Country: None (occurrence: None)
  Receive Date: 20111101
  Receipt Date: 20111011
  Transmission Date: 20120403
  Serious: Yes (Other)
  Sender: FDA-Public Use
  Company Number: BR-GILEAD-2011-0045322

PATIENT

DRUGS (4)
  1. LAMIVUDINE (EPIVIR HBV) [Suspect]
     Indication: HIV INFECTION
  2. RALTEGRAVIR [Suspect]
     Indication: HIV INFECTION
  3. RIFAMPIN [Concomitant]
     Indication: TUBERCULOSIS
  4. TENOFOVIR DISOPROXIL FUMARATE [Suspect]
     Indication: HIV INFECTION

REACTIONS (1)
  - NEUTROPENIA [None]
